FAERS Safety Report 12298200 (Version 1)
Quarter: 2016Q2

REPORT INFORMATION
  Report Type: Spontaneous
  Country: US (occurrence: US)
  Receive Date: 20160423
  Receipt Date: 20160423
  Transmission Date: 20160815
  Serious: No
  Sender: FDA-Public Use
  Company Number: US-009507513-1604USA011036

PATIENT
  Sex: Male

DRUGS (3)
  1. OXYCODONE [Concomitant]
     Active Substance: OXYCODONE
     Dosage: UNK
  2. BELSOMRA [Suspect]
     Active Substance: SUVOREXANT
     Indication: INSOMNIA
     Dosage: ONE 10 MG TABLET DAILY
     Route: 048
     Dates: start: 20160302, end: 20160330
  3. ADDERALL [Concomitant]
     Active Substance: AMPHETAMINE ASPARTATE\AMPHETAMINE SULFATE\DEXTROAMPHETAMINE SACCHARATE\DEXTROAMPHETAMINE SULFATE
     Dosage: UNK

REACTIONS (1)
  - Sleep paralysis [Recovered/Resolved]

NARRATIVE: CASE EVENT DATE: 20160330
